FAERS Safety Report 6978087-1 (Version None)
Quarter: 2010Q3

REPORT INFORMATION
  Report Type: 
  Country: None (occurrence: None)
  Receive Date: 20100913
  Receipt Date: 20100830
  Transmission Date: 20110219
  Serious: Yes (Other)
  Sender: FDA-Public Use
  Company Number: US-ELI_LILLY_AND_COMPANY-US201008006187

PATIENT
  Sex: Female

DRUGS (2)
  1. FORTEO [Suspect]
  2. ANALGESICS [Concomitant]

REACTIONS (5)
  - ABASIA [None]
  - BLOOD PRESSURE DECREASED [None]
  - DIZZINESS [None]
  - MUSCULAR WEAKNESS [None]
  - PAIN [None]
